FAERS Safety Report 9878021 (Version 1)
Quarter: 2014Q1

REPORT INFORMATION
  Report Type: Spontaneous
  Country: US (occurrence: US)
  Receive Date: 20140206
  Receipt Date: 20140206
  Transmission Date: 20141002
  Serious: No
  Sender: FDA-Public Use
  Company Number: US-009507513-1402USA000427

PATIENT
  Age: 23 Year
  Sex: Female
  Weight: 68.27 kg

DRUGS (1)
  1. IMPLANON [Suspect]
     Indication: CONTRACEPTION
     Dosage: 1 ROD UP TO 3 YEARS, LEFT ARM
     Route: 059
     Dates: start: 20121015

REACTIONS (3)
  - Haemorrhage [Unknown]
  - Hormone level abnormal [Unknown]
  - Alopecia [Unknown]
